FAERS Safety Report 21613956 (Version 1)
Quarter: 2022Q4

REPORT INFORMATION
  Report Type: Spontaneous
  Country: US (occurrence: None)
  Receive Date: 20221118
  Receipt Date: 20221118
  Transmission Date: 20230112
  Serious: Yes (Death, Life-Threatening, Hospitalization, Other)
  Sender: FDA-Public Use
  Company Number: US-BROWN + BURK(UK) LIMITED-ML2022-05651

PATIENT
  Age: 32 Year
  Sex: Female

DRUGS (1)
  1. CLOBAZAM [Suspect]
     Active Substance: CLOBAZAM
     Indication: Partial seizures

REACTIONS (11)
  - Bradycardia [Recovered/Resolved]
  - Cardiac arrest [Fatal]
  - Respiratory arrest [Fatal]
  - Brain injury [Fatal]
  - Hyponatraemia [Fatal]
  - Pulmonary embolism [Fatal]
  - Suicide attempt [Fatal]
  - Pneumonia necrotising [Fatal]
  - Intentional overdose [Fatal]
  - Toxicity to various agents [Fatal]
  - Drug abuse [Fatal]
